FAERS Safety Report 25834947 (Version 2)
Quarter: 2025Q4

REPORT INFORMATION
  Report Type: Spontaneous
  Country: US (occurrence: US)
  Receive Date: 20250923
  Receipt Date: 20251013
  Transmission Date: 20260119
  Serious: Yes (Life-Threatening, Hospitalization)
  Sender: TEVA
  Company Number: US-TEVA-VS-3373778

PATIENT
  Age: 71 Year
  Sex: Female

DRUGS (12)
  1. EPINEPHRINE [Suspect]
     Active Substance: EPINEPHRINE
     Indication: Shock
     Dosage: EPINEPHRINE
     Route: 065
  2. CEFEPIME [Concomitant]
     Active Substance: CEFEPIME HYDROCHLORIDE
     Indication: Antibiotic therapy
     Route: 065
  3. VANCOMYCIN [Concomitant]
     Active Substance: VANCOMYCIN
     Indication: Antibiotic therapy
     Route: 065
  4. METRONIDAZOLE [Concomitant]
     Active Substance: METRONIDAZOLE
     Indication: Antibiotic therapy
     Route: 065
  5. NOREPINEPHRINE [Suspect]
     Active Substance: NOREPINEPHRINE
     Indication: Shock
     Route: 065
  6. MIDODRINE [Suspect]
     Active Substance: MIDODRINE
     Indication: Shock
     Route: 065
  7. PHENYLEPHRINE [Suspect]
     Active Substance: PHENYLEPHRINE
     Indication: Shock
     Route: 065
  8. VASOPRESSIN [Suspect]
     Active Substance: VASOPRESSIN
     Indication: Shock
     Route: 065
  9. METHYLENE BLUE [Suspect]
     Active Substance: METHYLENE BLUE
     Indication: Shock
     Route: 065
  10. SODIUM BICARBONATE [Suspect]
     Active Substance: SODIUM BICARBONATE
     Indication: Shock
     Route: 065
  11. TROMETHAMINE [Suspect]
     Active Substance: TROMETHAMINE
     Indication: Shock
     Route: 065
  12. DEVICE [Suspect]
     Active Substance: DEVICE

REACTIONS (1)
  - Drug ineffective [Unknown]
